FAERS Safety Report 8439493-1 (Version None)
Quarter: 2012Q2

REPORT INFORMATION
  Report Type: 
  Country: None (occurrence: None)
  Receive Date: 20120615
  Receipt Date: 20120612
  Transmission Date: 20120825
  Serious: Yes (Hospitalization, Other)
  Sender: FDA-Public Use
  Company Number: US-BAYER-2012-048041

PATIENT
  Age: 76 Year
  Sex: Male

DRUGS (17)
  1. VISINE EYE DROPS [Concomitant]
     Dosage: 0,05% OP
     Dates: start: 20110303
  2. LUMIGAN [Concomitant]
     Dosage: UNK
     Dates: start: 20080602
  3. LUMIGAN [Concomitant]
     Dosage: UNK
     Dates: start: 20090817
  4. AMOXICILLIN [Concomitant]
     Dosage: UNK
     Dates: end: 20100624
  5. METAMUCIL-2 [Concomitant]
     Dosage: UNK
     Dates: start: 20090817
  6. PATANOL [Concomitant]
     Dosage: UNK
     Dates: start: 20081009
  7. COMBIGAN [Concomitant]
     Dosage: UNK
     Dates: start: 20110303
  8. FLOMAX [Concomitant]
     Dosage: UNK
     Dates: start: 20090817
  9. ALBUTEROL [Concomitant]
     Dosage: UNK
     Dates: start: 20090817
  10. OMEPRAZOLE [Concomitant]
     Dosage: 1 DF, QD
     Dates: start: 20090817
  11. AVALIDE [Concomitant]
     Dosage: 0.5 DF, UNK
     Dates: start: 20090817
  12. NEXAVAR [Suspect]
     Dosage: 400 MG, BID
     Route: 048
     Dates: start: 20090819, end: 20120511
  13. LOSARTAN POTASSIUM [Concomitant]
     Dosage: UNK
     Dates: start: 20100624
  14. ASPIRIN [Concomitant]
     Dosage: UNK
     Dates: start: 20090817, end: 20100824
  15. NASONEX [Concomitant]
     Dosage: UNK
     Dates: start: 20090817
  16. TRICOR [Concomitant]
     Dosage: 725 MG, UNK
     Dates: start: 20090817
  17. CRESTOR [Concomitant]
     Dosage: UNK

REACTIONS (7)
  - BLOOD PRESSURE INCREASED [None]
  - BLOOD SODIUM DECREASED [None]
  - BLOOD MAGNESIUM DECREASED [None]
  - ISCHAEMIC STROKE [None]
  - VISUAL IMPAIRMENT [None]
  - BLOOD POTASSIUM DECREASED [None]
  - HEADACHE [None]
